FAERS Safety Report 19000713 (Version 2)
Quarter: 2021Q1

REPORT INFORMATION
  Report Type: Spontaneous
  Country: GB (occurrence: GB)
  Receive Date: 20210311
  Receipt Date: 20210317
  Transmission Date: 20210420
  Serious: Yes (Other)
  Sender: FDA-Public Use
  Company Number: GB-ORGANON-O2103GBR001426

PATIENT
  Sex: Male

DRUGS (1)
  1. PROPECIA [Suspect]
     Active Substance: FINASTERIDE
     Dosage: UNK
     Route: 048

REACTIONS (30)
  - Testis cancer [Unknown]
  - Tinnitus [Unknown]
  - Product use issue [Unknown]
  - Chromaturia [Unknown]
  - Disturbance in attention [Unknown]
  - Emotional disorder [Unknown]
  - Ocular hyperaemia [Unknown]
  - Dry eye [Unknown]
  - Dry skin [Unknown]
  - Insomnia [Unknown]
  - Anxiety [Unknown]
  - Abulia [Unknown]
  - Eye pain [Unknown]
  - Nail pitting [Unknown]
  - Irritability [Unknown]
  - Vision blurred [Unknown]
  - Suicidal ideation [Unknown]
  - Asthenia [Unknown]
  - Taste disorder [Unknown]
  - General physical health deterioration [Unknown]
  - Neoplasm malignant [Unknown]
  - Anosmia [Unknown]
  - Cognitive disorder [Unknown]
  - Loss of libido [Unknown]
  - Drug use disorder [Unknown]
  - Memory impairment [Unknown]
  - Pollakiuria [Unknown]
  - Nail disorder [Unknown]
  - Cerebral disorder [Unknown]
  - Swelling face [Unknown]

NARRATIVE: CASE EVENT DATE: 2012
